FAERS Safety Report 7395036-5 (Version None)
Quarter: 2011Q1

REPORT INFORMATION
  Report Type: 
  Country: None (occurrence: None)
  Receive Date: 20110325
  Receipt Date: 20110316
  Transmission Date: 20110831
  Serious: Yes (Life-Threatening, Hospitalization)
  Sender: FDA-Public Use
  Company Number: WAES 1005USA02795

PATIENT
  Age: 67 Year
  Sex: Male

DRUGS (8)
  1. KARDEGIC [Concomitant]
  2. PREDNISOLONE [Concomitant]
  3. TIOTROPIUM BROMIDE [Concomitant]
  4. AMLODIPINE [Concomitant]
  5. FLUTICASONE PROPIONATE (+) SALMETEROL XI [Concomitant]
  6. PLACEBO [Suspect]
     Indication: ACUTE CORONARY SYNDROME
     Dosage: PO
     Route: 048
     Dates: start: 20070529
  7. RAMIPRIL [Concomitant]
  8. ZOCOR [Suspect]
     Indication: ACUTE CORONARY SYNDROME
     Dosage: 80 MG, DAILY, PO
     Route: 048
     Dates: start: 20070529

REACTIONS (1)
  - RECTAL CANCER [None]
